FAERS Safety Report 6312106-0 (Version None)
Quarter: 2009Q3

REPORT INFORMATION
  Report Type: 
  Country: None (occurrence: None)
  Receive Date: 20090817
  Receipt Date: 20090810
  Transmission Date: 20100115
  Serious: Yes (Hospitalization, Other)
  Sender: FDA-Public Use
  Company Number: US-ASTRAZENECA-2009SE07682

PATIENT
  Age: 57 Year
  Sex: Male

DRUGS (3)
  1. SEROQUEL [Suspect]
     Indication: SCHIZOPHRENIA
     Route: 048
  2. CONSTA [Concomitant]
  3. RISPERDAL [Concomitant]
     Route: 048

REACTIONS (2)
  - DELUSION [None]
  - FALL [None]
